FAERS Safety Report 10554813 (Version 18)
Quarter: 2015Q2

REPORT INFORMATION
  Report Type: Report from Study
  Country: FR (occurrence: FR)
  Receive Date: 20141030
  Receipt Date: 20150521
  Transmission Date: 20150821
  Serious: Yes (Hospitalization)
  Sender: FDA-Public Use
  Company Number: FR-SA-2014SA094284

PATIENT
  Age: 83 Year
  Sex: Male

DRUGS (1)
  1. CABAZITAXEL [Suspect]
     Active Substance: CABAZITAXEL
     Route: 065

REACTIONS (26)
  - Groin pain [Unknown]
  - Dyspnoea exertional [Not Recovered/Not Resolved]
  - Polyuria [Not Recovered/Not Resolved]
  - Oedema peripheral [Not Recovered/Not Resolved]
  - Hyperthermia [Unknown]
  - Dysgeusia [Not Recovered/Not Resolved]
  - Pain in extremity [Unknown]
  - Arthralgia [Not Recovered/Not Resolved]
  - Osteoarthritis [Unknown]
  - Peripheral sensory neuropathy [Not Recovered/Not Resolved]
  - Fatigue [Unknown]
  - Lacrimation increased [Not Recovered/Not Resolved]
  - Dyspnoea [Recovered/Resolved]
  - Sensory disturbance [Unknown]
  - Diarrhoea [Recovering/Resolving]
  - Limb discomfort [Unknown]
  - Decreased appetite [Not Recovered/Not Resolved]
  - Stomatitis [Unknown]
  - Weight decreased [Not Recovered/Not Resolved]
  - Pain in extremity [Unknown]
  - Epistaxis [Not Recovered/Not Resolved]
  - Constipation [Recovered/Resolved]
  - Alopecia [Not Recovered/Not Resolved]
  - Asthenia [Recovering/Resolving]
  - Paraesthesia [Unknown]
  - Pain [Unknown]

NARRATIVE: CASE EVENT DATE: 20130323
